FAERS Safety Report 7081463-2 (Version None)
Quarter: 2010Q4

REPORT INFORMATION
  Report Type: 
  Country: None (occurrence: None)
  Receive Date: 20101103
  Receipt Date: 20101026
  Transmission Date: 20110411
  Serious: Yes (Hospitalization)
  Sender: FDA-Public Use
  Company Number: JP-ABBOTT-10P-087-0646356-00

PATIENT
  Sex: Female
  Weight: 52 kg

DRUGS (15)
  1. HUMIRA [Suspect]
     Indication: RHEUMATOID ARTHRITIS
     Route: 058
     Dates: start: 20091030, end: 20091113
  2. METHOTREXATE [Concomitant]
     Indication: RHEUMATOID ARTHRITIS
  3. PREDNISOLONE [Concomitant]
     Indication: RHEUMATOID ARTHRITIS
     Route: 048
  4. CELECOXIB [Concomitant]
     Indication: RHEUMATOID ARTHRITIS
  5. ALENDRONATE SODIUM HYDRATE [Concomitant]
     Indication: OSTEOPOROSIS PROPHYLAXIS
  6. ALENDRONATE SODIUM HYDRATE [Concomitant]
  7. LANSOPRAZOLE [Concomitant]
     Indication: PROPHYLAXIS AGAINST GASTROINTESTINAL ULCER
  8. FOLIC ACID [Concomitant]
     Indication: PROPHYLAXIS
  9. FOLIC ACID [Concomitant]
     Indication: ADVERSE DRUG REACTION
  10. LIMAPROST ALFADEX [Concomitant]
     Indication: PROPHYLAXIS
  11. LIMAPROST ALFADEX [Concomitant]
     Indication: THROMBOSIS
  12. MECOBALAMIN [Concomitant]
     Indication: PROPHYLAXIS
  13. MECOBALAMIN [Concomitant]
     Indication: NEUROPATHY PERIPHERAL
  14. KOLANTYL [Concomitant]
     Indication: GASTRITIS PROPHYLAXIS
  15. TEPRENONE [Concomitant]
     Indication: GASTRITIS PROPHYLAXIS

REACTIONS (2)
  - DIARRHOEA [None]
  - MELAENA [None]
